FAERS Safety Report 6253517-1 (Version None)
Quarter: 2009Q3

REPORT INFORMATION
  Report Type: 
  Country: None (occurrence: None)
  Receive Date: 20090701
  Receipt Date: 20090623
  Transmission Date: 20100115
  Serious: Yes (Hospitalization)
  Sender: FDA-Public Use
  Company Number: JP-SANOFI-SYNTHELABO-A01200816285

PATIENT
  Sex: Male

DRUGS (11)
  1. LASIX [Concomitant]
     Indication: CARDIAC FAILURE
     Route: 048
     Dates: start: 20080911
  2. SIGMART [Concomitant]
     Indication: CORONARY ARTERY DISEASE
     Route: 048
  3. PREDNISOLONE [Concomitant]
     Indication: POLYMYALGIA RHEUMATICA
     Route: 048
  4. ASPIRIN [Concomitant]
     Indication: CORONARY ARTERIAL STENT INSERTION
     Route: 048
     Dates: start: 20080903
  5. RENIVACE [Suspect]
     Indication: HYPERTENSION
     Route: 048
     Dates: start: 20080903, end: 20081017
  6. RENIVACE [Suspect]
     Indication: CARDIAC FAILURE
     Route: 048
     Dates: start: 20080903, end: 20081017
  7. TAKEPRON [Suspect]
     Indication: GASTRODUODENAL ULCER
     Route: 048
     Dates: start: 20080906, end: 20081015
  8. PLAVIX [Suspect]
     Indication: PERCUTANEOUS CORONARY INTERVENTION
     Route: 048
     Dates: start: 20080903, end: 20081015
  9. PLAVIX [Suspect]
     Indication: CORONARY ARTERIAL STENT INSERTION
     Route: 048
     Dates: start: 20080903, end: 20081015
  10. PLAVIX [Suspect]
     Indication: MYOCARDIAL INFARCTION
     Route: 048
     Dates: start: 20080903, end: 20081015
  11. CRESTOR [Suspect]
     Indication: HYPERLIPIDAEMIA
     Route: 048
     Dates: start: 20080905, end: 20081015

REACTIONS (1)
  - EOSINOPHILIC PNEUMONIA [None]
